FAERS Safety Report 11428464 (Version 1)
Quarter: 2015Q3

REPORT INFORMATION
  Report Type: Spontaneous
  Country: US (occurrence: None)
  Receive Date: 20150827
  Receipt Date: 20150827
  Transmission Date: 20151125
  Serious: No
  Sender: FDA-Public Use
  Company Number: None

PATIENT
  Age: 57 Year
  Sex: Male
  Weight: 78.47 kg

DRUGS (4)
  1. ACE INHIBITOR [Concomitant]
     Active Substance: UNSPECIFIED INGREDIENT
  2. B BLOCKER [Concomitant]
  3. NIASPAN [Suspect]
     Active Substance: NIACIN
     Indication: HYPERCHOLESTEROLAEMIA
     Dosage: 1 OD  QD  ORAL
     Route: 048
     Dates: start: 2013, end: 2015
  4. STATIN [Concomitant]
     Active Substance: UNSPECIFIED INGREDIENT

REACTIONS (3)
  - Flushing [None]
  - Product substitution issue [None]
  - Drug ineffective [None]

NARRATIVE: CASE EVENT DATE: 20140831
